FAERS Safety Report 19952261 (Version 1)
Quarter: 2021Q4

REPORT INFORMATION
  Report Type: Spontaneous
  Country: NO (occurrence: NO)
  Receive Date: 20211013
  Receipt Date: 20211013
  Transmission Date: 20220303
  Serious: Yes (Other)
  Sender: FDA-Public Use
  Company Number: None

PATIENT
  Age: 41 Year
  Sex: Female
  Weight: 66 kg

DRUGS (12)
  1. INFLIXIMAB [Interacting]
     Active Substance: INFLIXIMAB
     Indication: Crohn^s disease
     Dosage: L04AB02-INFLIXIMAB- ONGOING TREATMENT
     Route: 042
     Dates: start: 2018
  2. INFLIXIMAB [Interacting]
     Active Substance: INFLIXIMAB
     Indication: Ankylosing spondylitis
  3. COMIRNATY [Interacting]
     Active Substance: TOZINAMERAN
     Indication: Immunisation
     Dosage: UNKNOWN, DOSE NO. IN SERIES: 1. J07BX03-COVID-19 VACCINES. 5 CAPPED MRNA ENCODING FULL LENGTH SARS-C
     Route: 030
     Dates: start: 2021
  4. COMIRNATY [Interacting]
     Active Substance: TOZINAMERAN
     Dosage: UNKNOWN, DOSE NO. IN SERIES: 2 VACCINATION SITE: LEFTARM. J07BX03-COVID-19 VACCINES. 5 CAPPED MRNA E
     Route: 030
     Dates: start: 20210728
  5. VITAMIN B COMPLEX [Concomitant]
     Active Substance: CYANOCOBALAMIN\DEXPANTHENOL\NIACINAMIDE\PYRIDOXINE HYDROCHLORIDE\RIBOFLAVIN 5^-PHOSPHATE SODIUM\THIA
     Indication: Product used for unknown indication
     Dosage: UNKNOWN
     Route: 065
  6. MAGNESIUM [Concomitant]
     Active Substance: MAGNESIUM
     Indication: Product used for unknown indication
     Dosage: UNKNOWN
     Route: 065
  7. MELATONIN [Concomitant]
     Active Substance: MELATONIN
     Indication: Insomnia
     Dosage: N05CH01-MELATONIN-ONGOING TREATMENT
     Route: 048
     Dates: start: 2019
  8. LYRICA [Concomitant]
     Active Substance: PREGABALIN
     Indication: Neuralgia
     Dosage: N03AX16-PREGABALIN-ONGOING TREATMENT
     Route: 048
     Dates: start: 201906
  9. PANTOPRAZOLE SODIUM [Concomitant]
     Active Substance: PANTOPRAZOLE SODIUM
     Indication: Gastric ulcer
     Dosage: A02BC02-PANTOPRAZOL-ONGOING TREATMENT
     Route: 048
     Dates: start: 2018
  10. METOPROLOL TARTRATE [Concomitant]
     Active Substance: METOPROLOL TARTRATE
     Indication: Heart rate increased
     Dosage: C07AB02-METOPROLOL-ONGOING TREATMENT
     Route: 048
     Dates: start: 2014
  11. ACETAMINOPHEN [Concomitant]
     Active Substance: ACETAMINOPHEN
     Indication: Pain
     Dosage: N02BE01-PARACETAMOL-ONGOING TREATMENT
     Route: 048
     Dates: start: 2018
  12. Lactic acid bateria [Concomitant]
     Indication: Product used for unknown indication
     Dosage: UNKNOWN
     Route: 065

REACTIONS (5)
  - Ankylosing spondylitis [Unknown]
  - Drug interaction [Not Recovered/Not Resolved]
  - Dysmenorrhoea [Not Recovered/Not Resolved]
  - Therapeutic product effect decreased [Not Recovered/Not Resolved]
  - Product use issue [Unknown]

NARRATIVE: CASE EVENT DATE: 20210101
